FAERS Safety Report 9596894 (Version 1)
Quarter: 2013Q4

REPORT INFORMATION
  Report Type: Spontaneous
  Country: US (occurrence: US)
  Receive Date: 20131004
  Receipt Date: 20131004
  Transmission Date: 20140711
  Serious: Yes (Hospitalization)
  Sender: FDA-Public Use
  Company Number: US-B.I. PHARMACEUTICALS,INC./RIDGEFIELD-2013-BI-30202BP

PATIENT
  Age: 80 Year
  Sex: Female

DRUGS (1)
  1. GILOTRIF [Suspect]
     Indication: LUNG CARCINOMA CELL TYPE UNSPECIFIED STAGE 0
     Route: 048
     Dates: start: 20130912

REACTIONS (3)
  - Haematochezia [Unknown]
  - Diarrhoea [Unknown]
  - Nausea [Unknown]
